FAERS Safety Report 12319425 (Version 5)
Quarter: 2016Q4

REPORT INFORMATION
  Report Type: Report from Study
  Country: None (occurrence: CA)
  Receive Date: 20160429
  Receipt Date: 20161109
  Transmission Date: 20170207
  Serious: Yes (Hospitalization, Other)
  Sender: FDA-Public Use
  Company Number: CA-ABBVIE-16P-028-1616806-00

PATIENT
  Age: 54 Year
  Sex: Male
  Weight: 60.38 kg

DRUGS (2)
  1. MODERIBA [Suspect]
     Active Substance: RIBAVIRIN
     Indication: CHRONIC HEPATITIS C
     Route: 048
     Dates: start: 20151120, end: 20160212
  2. HOLKIRA PAK [Suspect]
     Active Substance: DASABUVIR\OMBITASVIR\PARITAPREVIR\RITONAVIR
     Indication: CHRONIC HEPATITIS C
     Dosage: TWO 12.5/75/50 MG TABLETS ONCE DAILY AND ONE DASABUVIR 250 MG TABLET TWICE DAILY
     Route: 048
     Dates: start: 20151120, end: 20160212

REACTIONS (2)
  - Pleural effusion [Recovered/Resolved]
  - Myocardial infarction [Unknown]

NARRATIVE: CASE EVENT DATE: 201602
